FAERS Safety Report 25919784 (Version 1)
Quarter: 2025Q4

REPORT INFORMATION
  Report Type: Spontaneous
  Country: US (occurrence: US)
  Receive Date: 20251014
  Receipt Date: 20251014
  Transmission Date: 20260118
  Serious: Yes (Other)
  Sender: BOTANIX PHARMACEUTICALS
  Company Number: US-BOTANIX PHARMACEUTICALS-2025BOT00224

PATIENT
  Age: 30 Year
  Sex: Male

DRUGS (1)
  1. SOFDRA [Suspect]
     Active Substance: SOFPIRONIUM BROMIDE
     Indication: Hyperhidrosis
     Dosage: 1 PUMP PER AXILLA, 1X/DAY AT BEDTIME
     Route: 061
     Dates: start: 202505, end: 202506

REACTIONS (4)
  - Urinary retention [Recovered/Resolved]
  - Visual impairment [Unknown]
  - Mydriasis [Unknown]
  - Vision blurred [Unknown]

NARRATIVE: CASE EVENT DATE: 20250619
